FAERS Safety Report 23689305 (Version 1)
Quarter: 2024Q1

REPORT INFORMATION
  Report Type: Spontaneous
  Country: US (occurrence: US)
  Receive Date: 20240330
  Receipt Date: 20240330
  Transmission Date: 20240410
  Serious: Yes (Other)
  Sender: FDA-Public Use
  Company Number: US-SA-SAC20240327000434

PATIENT
  Age: 59 Year
  Sex: Male

DRUGS (2)
  1. CERDELGA [Suspect]
     Active Substance: ELIGLUSTAT
     Indication: Gaucher^s disease
     Dosage: UNK
     Route: 065
  2. NEUPOGEN [Suspect]
     Active Substance: FILGRASTIM
     Dosage: UNK

REACTIONS (2)
  - Colorectal cancer [Unknown]
  - Bone pain [Not Recovered/Not Resolved]

NARRATIVE: CASE EVENT DATE: 20231101
